FAERS Safety Report 4641935-4 (Version None)
Quarter: 2005Q2

REPORT INFORMATION
  Report Type: 
  Country: None (occurrence: None)
  Receive Date: 20050421
  Receipt Date: 20050406
  Transmission Date: 20051028
  Serious: Yes (Hospitalization)
  Sender: FDA-Public Use
  Company Number: TPA2004A01120

PATIENT
  Age: 73 Year
  Sex: Male
  Weight: 91.2 kg

DRUGS (2)
  1. PIOGLITAZONE HCL [Suspect]
     Indication: DIABETES MELLITUS
     Dosage: QAM, PER ORAL
     Route: 048
     Dates: start: 20040609
  2. PIOGLITAZONE HCL [Suspect]
     Indication: PROPHYLAXIS
     Dosage: QAM, PER ORAL
     Route: 048
     Dates: start: 20040609

REACTIONS (3)
  - BILIARY COLIC [None]
  - BLOOD GLUCOSE INCREASED [None]
  - CHOLELITHIASIS [None]
